FAERS Safety Report 4456428-7 (Version None)
Quarter: 2004Q3

REPORT INFORMATION
  Report Type: 
  Country: None (occurrence: None)
  Receive Date: 20040830
  Receipt Date: 20040527
  Transmission Date: 20050211
  Serious: No
  Sender: FDA-Public Use
  Company Number: 206829

PATIENT
  Age: 59 Year
  Sex: Male

DRUGS (1)
  1. XOLAIR [Suspect]
     Indication: ASTHMA
     Dosage: 325 MG, Q2W, SUBCUTANEOUS
     Route: 058
     Dates: start: 20031124

REACTIONS (1)
  - INFLUENZA LIKE ILLNESS [None]
